FAERS Safety Report 22268949 (Version 3)
Quarter: 2023Q2

REPORT INFORMATION
  Report Type: Spontaneous
  Country: US (occurrence: US)
  Receive Date: 20230501
  Receipt Date: 20230525
  Transmission Date: 20230721
  Serious: No
  Sender: FDA-Public Use
  Company Number: US-AIMMUNE THERAPEUTICS, INC.-2023AIMT00377

PATIENT

DRUGS (10)
  1. PALFORZIA [Suspect]
     Active Substance: PEANUT
     Indication: Food allergy
     Dosage: IDE (0.5MG-6MG), ONCE
     Route: 048
     Dates: start: 20230124, end: 20230124
  2. PALFORZIA [Suspect]
     Active Substance: PEANUT
     Dosage: 20 MG, 1X/DAY
     Route: 048
     Dates: start: 20230314, end: 20230327
  3. PALFORZIA [Suspect]
     Active Substance: PEANUT
     Dosage: 20 MG, ONCE, LAST DOSE PRIOR ECZEMA GOT WORSE
     Route: 048
     Dates: start: 202303, end: 202303
  4. PALFORZIA [Suspect]
     Active Substance: PEANUT
     Dosage: 40 MG, 1X/DAY
     Route: 048
     Dates: start: 20230328, end: 20230410
  5. PALFORZIA [Suspect]
     Active Substance: PEANUT
     Dosage: 40 MG, ONCE, LAST DOSE PRIOR EVENTS
     Route: 048
  6. PALFORZIA [Suspect]
     Active Substance: PEANUT
     Dosage: 80 MG, 1X/DAY
     Route: 048
     Dates: start: 20230411, end: 20230417
  7. PALFORZIA [Suspect]
     Active Substance: PEANUT
     Dosage: 80 MG, ONCE, LAST DOSE PRIOR ERYTHEMA AND PIMPLES
     Route: 048
     Dates: start: 202304, end: 202304
  8. PALFORZIA [Suspect]
     Active Substance: PEANUT
     Dosage: 80 MG, 1X/DAY, RESUMED
     Route: 048
     Dates: start: 20230419, end: 20230501
  9. ZYRTEC [Concomitant]
     Active Substance: CETIRIZINE HYDROCHLORIDE
     Indication: Product used for unknown indication
     Dosage: 10 ML, AS NEEDED
  10. TRIAMCINOLONE ACETONIDE [Concomitant]
     Active Substance: TRIAMCINOLONE ACETONIDE
     Indication: Eczema
     Dosage: UNK, 2X/DAY
     Route: 061

REACTIONS (16)
  - Eczema [Recovering/Resolving]
  - Eyelid exfoliation [Recovering/Resolving]
  - Erythema of eyelid [Recovering/Resolving]
  - Periorbital swelling [Recovered/Resolved]
  - Rash pruritic [Recovering/Resolving]
  - Skin haemorrhage [Recovering/Resolving]
  - Ocular hyperaemia [Recovering/Resolving]
  - Erythema [Recovering/Resolving]
  - Dermatitis acneiform [Recovering/Resolving]
  - Dry skin [Recovering/Resolving]
  - Oropharyngeal discomfort [Recovering/Resolving]
  - Eyelid margin crusting [Recovering/Resolving]
  - Hordeolum [Recovering/Resolving]
  - Penile discomfort [Recovered/Resolved]
  - Pruritus [Recovering/Resolving]
  - Throat tightness [Recovering/Resolving]

NARRATIVE: CASE EVENT DATE: 20230301
